FAERS Safety Report 8538173-1 (Version None)
Quarter: 2012Q3

REPORT INFORMATION
  Report Type: 
  Country: None (occurrence: None)
  Receive Date: 20120726
  Receipt Date: 20120717
  Transmission Date: 20120928
  Serious: Yes (Hospitalization)
  Sender: FDA-Public Use
  Company Number: JP-009507513-1205USA00024

PATIENT

DRUGS (3)
  1. PRAVASTATIN [Concomitant]
     Dosage: UNK
     Dates: start: 20110310, end: 20110813
  2. PRAVASTATIN [Concomitant]
     Dosage: UNK
     Dates: end: 20101125
  3. SITAGLIPTIN PHOSPHATE [Suspect]
     Indication: TYPE 2 DIABETES MELLITUS
     Dosage: 50 MG, QD
     Route: 048
     Dates: start: 20110310, end: 20110814

REACTIONS (1)
  - POSTOPERATIVE ILEUS [None]
